FAERS Safety Report 7536850-2 (Version None)
Quarter: 2011Q2

REPORT INFORMATION
  Report Type: 
  Country: None (occurrence: None)
  Receive Date: 20110609
  Receipt Date: 20110531
  Transmission Date: 20111010
  Serious: Yes (Hospitalization)
  Sender: FDA-Public Use
  Company Number: FR-ASTRAZENECA-2010SE59777

PATIENT
  Age: 306 Day
  Sex: Male
  Weight: 8 kg

DRUGS (6)
  1. MIDAZOLAM HYDROCHLORIDE [Suspect]
     Indication: AGITATION
     Route: 042
     Dates: start: 20101027, end: 20101027
  2. VALIUM [Concomitant]
     Indication: CONVULSION
     Route: 054
     Dates: start: 20101027, end: 20101027
  3. SUFENTA PRESERVATIVE FREE [Suspect]
     Indication: ANAESTHESIA
     Route: 042
     Dates: start: 20101027
  4. ACETAMINOPHEN [Concomitant]
     Indication: PYREXIA
     Route: 042
     Dates: start: 20101026
  5. PHENOBARBITAL TAB [Suspect]
     Indication: CONVULSION
     Route: 042
     Dates: start: 20101027, end: 20101027
  6. DIPRIVAN [Suspect]
     Indication: ANAESTHESIA
     Route: 042
     Dates: start: 20101027

REACTIONS (1)
  - CYTOLYTIC HEPATITIS [None]
